FAERS Safety Report 5693893-1 (Version None)
Quarter: 2008Q2

REPORT INFORMATION
  Report Type: 
  Country: None (occurrence: None)
  Receive Date: 20080403
  Receipt Date: 20080328
  Transmission Date: 20081010
  Serious: Yes (Hospitalization)
  Sender: FDA-Public Use
  Company Number: US-WYE-H01194807

PATIENT
  Sex: Female
  Weight: 55.84 kg

DRUGS (8)
  1. SIROLIMUS [Suspect]
     Indication: PROPHYLAXIS AGAINST TRANSPLANT REJECTION
     Dosage: 4 MG/FREQUENCY NOT PROVIDED
     Route: 048
     Dates: start: 20041118, end: 20071101
  2. BACTRIM [Concomitant]
     Dosage: NOT PROVIDED
     Route: 065
  3. VITAMIN D [Concomitant]
     Dosage: NOT PROVIDED
     Route: 065
  4. ZOLPIDEM [Concomitant]
     Dosage: NOT PROVIDED
     Route: 065
  5. ASCORBIC ACID/ERGOCALCIFEROL/FOLIC ACID/NICOTINAMIDE/PANTHENOL/RETINOL [Concomitant]
     Dosage: NOT PROVIDED
     Route: 065
  6. CALCIUM [Concomitant]
     Dosage: NOT PROVIDED
     Route: 065
  7. URSODIOL [Concomitant]
     Dosage: NOT PROVIDED
     Route: 065
  8. OMEPRAZOLE [Concomitant]
     Dosage: NOT PROVIDED
     Route: 065

REACTIONS (3)
  - BILE DUCT STONE [None]
  - CHOLANGITIS [None]
  - LIVER ABSCESS [None]
